FAERS Safety Report 5793560-X (Version None)
Quarter: 2008Q2

REPORT INFORMATION
  Report Type: 
  Country: None (occurrence: None)
  Receive Date: 20080627
  Receipt Date: 20071210
  Transmission Date: 20081010
  Serious: No
  Sender: FDA-Public Use
  Company Number: A0698138A

PATIENT
  Age: 40 Year
  Sex: Female

DRUGS (5)
  1. FORTAZ [Suspect]
     Indication: PNEUMONIA
     Route: 042
  2. PERCOCET [Concomitant]
  3. ATIVAN [Concomitant]
  4. POTASSIUM CHLORIDE [Concomitant]
  5. PHENERGAN HCL [Concomitant]

REACTIONS (2)
  - EXTRAVASATION [None]
  - INFUSION SITE IRRITATION [None]
